FAERS Safety Report 7167061-0 (Version None)
Quarter: 2010Q4

REPORT INFORMATION
  Report Type: 
  Country: None (occurrence: None)
  Receive Date: 20101216
  Receipt Date: 20101208
  Transmission Date: 20110411
  Serious: Yes (Other)
  Sender: FDA-Public Use
  Company Number: US-BAYER-2010-004632

PATIENT
  Sex: Female

DRUGS (2)
  1. MIRENA [Suspect]
     Dosage: UNK
     Route: 015
     Dates: start: 20101118
  2. MIRENA [Suspect]
     Dosage: UNK
     Route: 015
     Dates: start: 20101118

REACTIONS (2)
  - COMPLICATION OF DEVICE INSERTION [None]
  - MEDICAL DEVICE ENTRAPMENT [None]
